FAERS Safety Report 22168953 (Version 2)
Quarter: 2023Q2

REPORT INFORMATION
  Report Type: Spontaneous
  Country: CR (occurrence: CR)
  Receive Date: 20230403
  Receipt Date: 20230412
  Transmission Date: 20230722
  Serious: Yes (Other)
  Sender: FDA-Public Use
  Company Number: None

PATIENT
  Age: 78 Year
  Sex: Male

DRUGS (13)
  1. FLUOXETINE [Interacting]
     Active Substance: FLUOXETINE HYDROCHLORIDE
     Indication: Depression
     Dosage: 1 DOSAGE FORM, BID (20 MG FLUOXETINE EVERY 12 OR 8 HOURS, DEPENDING ON HIS MOOD)
     Route: 065
     Dates: start: 202206, end: 202209
  2. FLUOXETINE [Interacting]
     Active Substance: FLUOXETINE HYDROCHLORIDE
     Dosage: 1 DOSAGE FORM, EVERY 8 HOURS (20 MG FLUOXETINE EVERY 12 OR 8 HOURS, DEPENDING ON HIS MOOD)
     Route: 065
     Dates: start: 202206, end: 202209
  3. OMEPRAZOLE [Interacting]
     Active Substance: OMEPRAZOLE
     Indication: Dyspepsia
     Dosage: 20 MILLIGRAM, QD (USE IF NECESSARY)
     Route: 065
  4. DIMENHYDRINATE [Interacting]
     Active Substance: DIMENHYDRINATE
     Indication: Nausea
     Dosage: 1 DOSAGE FORM, EVERY 6 HRS (PRESCRIPTION FOR 10 DAYS, THE PATIENT HAS BOUGHT MORE)
     Route: 065
     Dates: start: 202206, end: 202209
  5. DIMENHYDRINATE [Interacting]
     Active Substance: DIMENHYDRINATE
     Dosage: 50 MILLIGRAM, EVERY 8 HOURS (INITIALLY PRESCRIBED DOSE AND DURATION)
     Route: 065
  6. LOVASTATIN [Interacting]
     Active Substance: LOVASTATIN
     Indication: Hypercholesterolaemia
     Dosage: 1 DOSAGE FORM, QD
     Route: 065
  7. HYDROXYUREA [Concomitant]
     Active Substance: HYDROXYUREA
     Indication: Thrombosis
     Dosage: 1 DOSAGE FORM, QD
     Route: 065
     Dates: start: 202204
  8. ENALAPRIL [Concomitant]
     Active Substance: ENALAPRIL
     Indication: Hypertension
     Dosage: 1 DOSAGE FORM, QD
     Route: 065
  9. METFORMIN [Concomitant]
     Active Substance: METFORMIN HYDROCHLORIDE
     Indication: Diabetes mellitus
     Dosage: 1 DOSAGE FORM, QD
     Route: 065
  10. FAMOTIDINE [Concomitant]
     Active Substance: FAMOTIDINE
     Indication: Dyspepsia
     Dosage: 1 DOSAGE FORM, QD (USE IF NECESSARY)
     Route: 065
  11. ALKA-SELTZER [Concomitant]
     Active Substance: ANHYDROUS CITRIC ACID\ASPIRIN\SODIUM BICARBONATE
     Indication: Dyspepsia
     Dosage: 1 DOSAGE FORM, QD (USE IF NECESSARY)
     Route: 065
  12. ALUMINIUM HYDROXIDE GEL;MAGNESIUM HYDROXIDE [Concomitant]
     Indication: Hypertension
     Dosage: 1 DOSAGE FORM, EVERY 8 HRS
     Route: 065
  13. ALUMINIUM HYDROXIDE GEL;MAGNESIUM HYDROXIDE [Concomitant]
     Indication: Dyspepsia

REACTIONS (6)
  - Cholinergic syndrome [Recovered/Resolved]
  - Drug interaction [Unknown]
  - Self-medication [Recovered/Resolved]
  - Intentional product misuse [Unknown]
  - Serotonin syndrome [Recovered/Resolved]
  - Treatment noncompliance [Unknown]

NARRATIVE: CASE EVENT DATE: 20220601
